FAERS Safety Report 8607873-7 (Version None)
Quarter: 2012Q3

REPORT INFORMATION
  Report Type: 
  Country: None (occurrence: None)
  Receive Date: 20120821
  Receipt Date: 20120807
  Transmission Date: 20120928
  Serious: Yes (Other)
  Sender: FDA-Public Use
  Company Number: IN-MYLANLABS-2012S1016411

PATIENT
  Age: 46 Year
  Sex: Female
  Weight: 60 kg

DRUGS (2)
  1. PHENYTOIN [Suspect]
     Dosage: 150MG ADMINISTERED IN {1 MINUTE
     Route: 042
  2. PHENYTOIN [Concomitant]
     Dosage: 300MG DAILY
     Route: 048

REACTIONS (4)
  - BRONCHOSPASM [None]
  - INCORRECT DRUG ADMINISTRATION DURATION [None]
  - RESPIRATORY DISTRESS [None]
  - COUGH [None]
